FAERS Safety Report 7183995-5 (Version None)
Quarter: 2010Q4

REPORT INFORMATION
  Report Type: 
  Country: None (occurrence: None)
  Receive Date: 20101222
  Receipt Date: 20101213
  Transmission Date: 20110411
  Serious: Yes (Death)
  Sender: FDA-Public Use
  Company Number: US-ROCHE-748810

PATIENT
  Sex: Female

DRUGS (1)
  1. AVASTIN [Suspect]
     Dosage: DOSE, ROUTE, FORM AND FREQUENCY NOT PROVIDED.
     Route: 065

REACTIONS (1)
  - DEATH [None]
